FAERS Safety Report 20712517 (Version 1)
Quarter: 2022Q2

REPORT INFORMATION
  Report Type: Spontaneous
  Country: GB (occurrence: GB)
  Receive Date: 20220415
  Receipt Date: 20220415
  Transmission Date: 20220721
  Serious: Yes (Hospitalization, Other)
  Sender: FDA-Public Use
  Company Number: GB-MHRA-TPP28711969C8411620YC1649059936986

PATIENT
  Age: 31 Year
  Sex: Female
  Weight: 44 kg

DRUGS (4)
  1. NITROFURANTOIN [Suspect]
     Active Substance: NITROFURANTOIN
     Indication: Ill-defined disorder
     Dosage: UNK
     Route: 065
     Dates: start: 20220403
  2. AMOXICILLIN [Concomitant]
     Active Substance: AMOXICILLIN
     Indication: Ill-defined disorder
     Dosage: 1 DOSAGE FORM, 3 TIMES A DAY (FOR 7 DAYS)
     Route: 065
     Dates: start: 20220311, end: 20220318
  3. NITROFURANTOIN [Concomitant]
     Active Substance: NITROFURANTOIN
     Indication: Ill-defined disorder
     Dosage: 1 DOSAGE FORM, TWO TIMES A DAY (TAKE ONE CAPSULE TWICE DAILY FOR 7 DAYS, TO TRE)
     Route: 065
     Dates: start: 20220401
  4. AMDINOCILLIN PIVOXIL [Concomitant]
     Active Substance: AMDINOCILLIN PIVOXIL
     Indication: Ill-defined disorder
     Dosage: UNK (TAKE TWO TABLETS FOR THE FIRST DOSE, THEN ONE T)
     Route: 065
     Dates: start: 20220401, end: 20220401

REACTIONS (1)
  - Morning sickness [Recovered/Resolved]

NARRATIVE: CASE EVENT DATE: 20220403
